FAERS Safety Report 6368339-0 (Version None)
Quarter: 2009Q3

REPORT INFORMATION
  Report Type: 
  Country: None (occurrence: None)
  Receive Date: 20090922
  Receipt Date: 20090910
  Transmission Date: 20100115
  Serious: Yes (Other)
  Sender: FDA-Public Use
  Company Number: US-PFIZER INC-2009239292

PATIENT
  Sex: Female
  Weight: 58.967 kg

DRUGS (2)
  1. CELEBREX [Suspect]
     Indication: ARTHRITIS
     Dates: start: 20070301, end: 20070301
  2. IBANDRONATE SODIUM [Concomitant]

REACTIONS (2)
  - FALL [None]
  - POOR QUALITY SLEEP [None]
